FAERS Safety Report 15518547 (Version 19)
Quarter: 2020Q1

REPORT INFORMATION
  Report Type: Report from Study
  Country: US (occurrence: US)
  Receive Date: 20181017
  Receipt Date: 20200110
  Transmission Date: 20200409
  Serious: Yes (Hospitalization, Other)
  Sender: FDA-Public Use
  Company Number: US-ACTELION-A-US2018-176729

PATIENT
  Age: 61 Year
  Sex: Female
  Weight: 92.06 kg

DRUGS (7)
  1. UPTRAVI [Concomitant]
     Active Substance: SELEXIPAG
  2. OPSUMIT [Suspect]
     Active Substance: MACITENTAN
     Indication: PULMONARY ARTERIAL HYPERTENSION
     Dosage: 10 MG, QD
     Route: 048
     Dates: start: 20180720
  3. COUMADIN [Concomitant]
     Active Substance: WARFARIN SODIUM
  4. ADEMPAS [Suspect]
     Active Substance: RIOCIGUAT
     Route: 065
  5. BUMEX [Suspect]
     Active Substance: BUMETANIDE
     Indication: PRODUCT USED FOR UNKNOWN INDICATION
     Route: 065
  6. ADEMPAS [Suspect]
     Active Substance: RIOCIGUAT
     Indication: PRODUCT USED FOR UNKNOWN INDICATION
     Dosage: 2.5 MG, TID
     Route: 065
     Dates: start: 201811
  7. ADEMPAS [Suspect]
     Active Substance: RIOCIGUAT
     Dosage: 1 MG, UNK
     Route: 065

REACTIONS (43)
  - Pulmonary arterial hypertension [Not Recovered/Not Resolved]
  - Cough [Unknown]
  - Dyspnoea [Not Recovered/Not Resolved]
  - Pruritus [Unknown]
  - Echocardiogram abnormal [Unknown]
  - Pyrexia [Not Recovered/Not Resolved]
  - Immune system disorder [Unknown]
  - Vision blurred [Unknown]
  - Wheezing [Not Recovered/Not Resolved]
  - Pneumonia [Unknown]
  - Haemoglobin decreased [Recovering/Resolving]
  - Heart valve incompetence [Unknown]
  - Condition aggravated [Unknown]
  - Emotional disorder [Unknown]
  - Hypotension [Unknown]
  - Epistaxis [Unknown]
  - Upper respiratory tract congestion [Unknown]
  - Nasal congestion [Unknown]
  - Dehydration [Unknown]
  - Depression [Recovering/Resolving]
  - Palpitations [Unknown]
  - Dry throat [Not Recovered/Not Resolved]
  - Fluid retention [Unknown]
  - Viral infection [Unknown]
  - Productive cough [Not Recovered/Not Resolved]
  - Heart rate increased [Unknown]
  - Transfusion [Recovering/Resolving]
  - Cardiac disorder [Unknown]
  - Cardiac flutter [Unknown]
  - Secretion discharge [Unknown]
  - Paraesthesia [Unknown]
  - Dizziness [Unknown]
  - Rash [Unknown]
  - Sickle cell anaemia with crisis [Unknown]
  - Presyncope [Unknown]
  - Anxiety [Unknown]
  - Headache [Unknown]
  - Jugular vein distension [Unknown]
  - Throat irritation [Not Recovered/Not Resolved]
  - Diarrhoea [Unknown]
  - Dyspnoea at rest [Not Recovered/Not Resolved]
  - Peripheral swelling [Unknown]
  - Dyspnoea exertional [Not Recovered/Not Resolved]

NARRATIVE: CASE EVENT DATE: 20181012
